FAERS Safety Report 23617919 (Version 4)
Quarter: 2025Q2

REPORT INFORMATION
  Report Type: Report from Study
  Country: US (occurrence: US)
  Receive Date: 20240311
  Receipt Date: 20250522
  Transmission Date: 20250716
  Serious: Yes (Other)
  Sender: NOVARTIS
  Company Number: US-002147023-NVSC2024US051747

PATIENT
  Sex: Female

DRUGS (1)
  1. KESIMPTA [Suspect]
     Active Substance: OFATUMUMAB
     Indication: Multiple sclerosis
     Dosage: 20 MG, QMO
     Route: 058
     Dates: start: 20240315

REACTIONS (10)
  - Multiple sclerosis [Not Recovered/Not Resolved]
  - Dysarthria [Unknown]
  - Gait disturbance [Unknown]
  - Dizziness [Unknown]
  - Fine motor skill dysfunction [Unknown]
  - Dysphagia [Unknown]
  - General physical condition abnormal [Unknown]
  - Movement disorder [Unknown]
  - Vomiting [Unknown]
  - Wrong technique in device usage process [Unknown]
